FAERS Safety Report 24371866 (Version 2)
Quarter: 2024Q4

REPORT INFORMATION
  Report Type: Spontaneous
  Country: US (occurrence: US)
  Receive Date: 20240927
  Receipt Date: 20241003
  Transmission Date: 20250114
  Serious: No
  Sender: MILLICENT HOLDINGS
  Company Number: US-Millicent Holdings Ltd.-MILL20241168

PATIENT
  Age: 59 Year
  Sex: Female

DRUGS (2)
  1. FEMRING [Suspect]
     Active Substance: ESTRADIOL ACETATE
     Indication: Product used for unknown indication
     Dosage: 0.05 MG/DAY
     Route: 067
  2. PROGESTERONE [Concomitant]
     Active Substance: PROGESTERONE
     Route: 048

REACTIONS (3)
  - Vaginal haemorrhage [Recovered/Resolved]
  - Device expulsion [Unknown]
  - Device colour issue [None]

NARRATIVE: CASE EVENT DATE: 20240925
